FAERS Safety Report 8606491-4 (Version None)
Quarter: 2012Q3

REPORT INFORMATION
  Report Type: 
  Country: None (occurrence: None)
  Receive Date: 20120820
  Receipt Date: 20120813
  Transmission Date: 20120928
  Serious: Yes (Hospitalization, Other)
  Sender: FDA-Public Use
  Company Number: PHHY2010CA19788

PATIENT
  Sex: Male
  Weight: 129 kg

DRUGS (11)
  1. RAMIPRIL [Concomitant]
  2. SENNOSIDES A+B [Concomitant]
  3. CYMBALTA [Concomitant]
  4. XOLAIR [Suspect]
     Indication: ASTHMA
     Dosage: 375 MG, BIW
     Route: 058
     Dates: start: 20100329
  5. XOLAIR [Suspect]
     Dosage: 375 MG, BIW
     Route: 058
     Dates: start: 20100412
  6. METHADONE HYDROCHLORIDE [Suspect]
  7. GABAPENTIN [Concomitant]
  8. DOCUSATE SODIUM [Concomitant]
  9. ADVAIR [Concomitant]
  10. UNIPHYL [Concomitant]
  11. FLOMAX [Concomitant]

REACTIONS (28)
  - PRODUCTIVE COUGH [None]
  - OEDEMA PERIPHERAL [None]
  - FEELING HOT [None]
  - SINUSITIS [None]
  - FACIAL PAIN [None]
  - SINUS HEADACHE [None]
  - DECREASED ACTIVITY [None]
  - HYPERSOMNIA [None]
  - HEADACHE [None]
  - PAIN IN EXTREMITY [None]
  - EYELID OEDEMA [None]
  - NASAL CONGESTION [None]
  - RHINORRHOEA [None]
  - INSOMNIA [None]
  - BACTERIAL INFECTION [None]
  - COUGH [None]
  - FATIGUE [None]
  - CONVULSION [None]
  - INFLUENZA [None]
  - NASOPHARYNGITIS [None]
  - RESPIRATION ABNORMAL [None]
  - WOUND [None]
  - MENINGITIS [None]
  - SPUTUM DISCOLOURED [None]
  - HYPERHIDROSIS [None]
  - LUNG INFECTION [None]
  - RESPIRATORY DISORDER [None]
  - INFECTION [None]
